FAERS Safety Report 8447494-2 (Version None)
Quarter: 2012Q2

REPORT INFORMATION
  Report Type: 
  Country: None (occurrence: None)
  Receive Date: 20120619
  Receipt Date: 20120615
  Transmission Date: 20120825
  Serious: Yes (Hospitalization, Other)
  Sender: FDA-Public Use
  Company Number: PHHY2011AU105459

PATIENT
  Sex: Male
  Weight: 56 kg

DRUGS (6)
  1. EXJADE [Suspect]
     Dosage: 2000 MG, DAILY
     Route: 048
     Dates: start: 20110316
  2. BLOOD TRANSFUSION, AUXILIARY PRODUCTS [Concomitant]
     Dosage: UNK UKN, UNK
     Dates: start: 20111120
  3. EXJADE [Suspect]
     Indication: IRON OVERLOAD
     Dosage: 500 MG, TID
     Route: 048
     Dates: start: 20110316
  4. EXJADE [Suspect]
     Dosage: 500 MG, TID
     Route: 048
     Dates: start: 20120401
  5. EXJADE [Suspect]
     Dosage: 1250 MG, DAILY
     Route: 048
  6. EXJADE [Suspect]
     Dosage: 1250 MG
     Route: 048

REACTIONS (3)
  - DIARRHOEA [None]
  - SYNCOPE [None]
  - MALIGNANT MELANOMA [None]
